FAERS Safety Report 5743020-7 (Version None)
Quarter: 2008Q2

REPORT INFORMATION
  Report Type: 
  Country: None (occurrence: None)
  Receive Date: 20080515
  Receipt Date: 20080515
  Transmission Date: 20081010
  Serious: Yes (Other)
  Sender: FDA-Public Use
  Company Number: None

PATIENT
  Age: 36 Year
  Sex: Female
  Weight: 61.2356 kg

DRUGS (4)
  1. EFFEXOR XR [Suspect]
     Indication: ANXIETY
     Dosage: 75MG ONCE DAILY PO
     Route: 048
     Dates: start: 20080410, end: 20080511
  2. EFFEXOR XR [Suspect]
     Indication: DEPRESSION
     Dosage: 75MG ONCE DAILY PO
     Route: 048
     Dates: start: 20080410, end: 20080511
  3. EFFEXOR XR [Suspect]
     Indication: ANXIETY
     Dosage: 75MG ONCE DAILY PO
     Route: 048
     Dates: start: 20080410, end: 20080511
  4. EFFEXOR XR [Suspect]
     Indication: DEPRESSION
     Dosage: 75MG ONCE DAILY PO
     Route: 048
     Dates: start: 20080410, end: 20080511

REACTIONS (13)
  - ADVERSE DRUG REACTION [None]
  - ANXIETY [None]
  - BURNING SENSATION [None]
  - CONDITION AGGRAVATED [None]
  - DEPRESSION [None]
  - DRUG WITHDRAWAL SYNDROME [None]
  - EMOTIONAL DISORDER [None]
  - FATIGUE [None]
  - HYPERHIDROSIS [None]
  - NAUSEA [None]
  - PERFORMANCE STATUS DECREASED [None]
  - PERSONALITY DISORDER [None]
  - VERTIGO [None]
